FAERS Safety Report 14345332 (Version 1)
Quarter: 2018Q1

REPORT INFORMATION
  Report Type: Spontaneous
  Country: US (occurrence: US)
  Receive Date: 20180103
  Receipt Date: 20180103
  Transmission Date: 20180509
  Serious: Yes (Death)
  Sender: FDA-Public Use
  Company Number: US-PROCTER+GAMBLE-GS17143033

PATIENT
  Age: 48 Year
  Sex: Male

DRUGS (2)
  1. COCKTAILS [Suspect]
     Active Substance: ALCOHOL
     Dosage: UNK
     Route: 048
  2. NYQUIL NOS [Suspect]
     Active Substance: ACETAMINOPHEN\CHLORPHENIRAMINE\DEXTROMETHORPHAN\DIPHENHYDRAMINE\DOXYLAMINE\PSEUDOEPHEDRINE
     Dosage: A FEW DOSES
     Route: 048

REACTIONS (3)
  - Cardiac arrest [Fatal]
  - Accidental overdose [Fatal]
  - Labelled drug-food interaction medication error [Fatal]
